FAERS Safety Report 10098252 (Version 1)
Quarter: 2014Q2

REPORT INFORMATION
  Report Type: Spontaneous
  Country: US (occurrence: None)
  Receive Date: 20140421
  Receipt Date: 20140421
  Transmission Date: 20141212
  Serious: Yes (Other)
  Sender: FDA-Public Use
  Company Number: SYM-2014-19782

PATIENT
  Age: 25 Year
  Sex: Male

DRUGS (1)
  1. XENAZINE (TETRABENAZINE) (12.5 MILLIGRAM, TABLET) (TETRABENAZINE) [Suspect]
     Indication: DYSTONIA
     Dosage: 37.5 MG, 3 IN 1 D, ORAL
     Route: 048
     Dates: end: 20140407

REACTIONS (11)
  - Dizziness [None]
  - Nausea [None]
  - Fall [None]
  - Head injury [None]
  - Muscle spasms [None]
  - Musculoskeletal stiffness [None]
  - Abasia [None]
  - Aphagia [None]
  - Eructation [None]
  - Choking [None]
  - Depression [None]
